FAERS Safety Report 4394845-4 (Version None)
Quarter: 2004Q3

REPORT INFORMATION
  Report Type: 
  Country: None (occurrence: None)
  Receive Date: 20040707
  Receipt Date: 20040623
  Transmission Date: 20050211
  Serious: Yes (Hospitalization)
  Sender: FDA-Public Use
  Company Number: 04P-087-0262377-00

PATIENT
  Age: 66 Year
  Sex: Female

DRUGS (1)
  1. TRICOR [Suspect]
     Indication: HYPERLIPIDAEMIA
     Dosage: 150 MG, 2 IN 1 D, PER ORAL
     Route: 048
     Dates: start: 20040329, end: 20040412

REACTIONS (3)
  - ECHOGRAPHY ABNORMAL [None]
  - HEPATIC STEATOSIS [None]
  - JAUNDICE CHOLESTATIC [None]
